FAERS Safety Report 7209280-0 (Version None)
Quarter: 2011Q1

REPORT INFORMATION
  Report Type: 
  Country: None (occurrence: None)
  Receive Date: 20110104
  Receipt Date: 20101224
  Transmission Date: 20110831
  Serious: Yes (Life-Threatening, Hospitalization, Other)
  Sender: FDA-Public Use
  Company Number: B0690084A

PATIENT
  Age: 74 Year
  Sex: Male
  Weight: 72.1 kg

DRUGS (12)
  1. ACYCLOVIR [Concomitant]
     Route: 048
     Dates: start: 20050228
  2. MARAVIROC [Suspect]
     Indication: HIV INFECTION
     Dosage: 300MG TWICE PER DAY
     Route: 048
     Dates: start: 20050907
  3. ZIDOVUDINE [Concomitant]
     Route: 048
     Dates: start: 20060417
  4. TIPRANAVIR [Concomitant]
     Route: 048
     Dates: start: 20060505
  5. DOCUSATE [Concomitant]
     Route: 048
     Dates: start: 20091129
  6. EMTRICITABINE [Concomitant]
     Route: 048
     Dates: start: 20050922
  7. TENOFOVIR DISOPROXIL FUMARATE [Concomitant]
     Route: 048
     Dates: start: 20050922
  8. MAVIK [Concomitant]
     Route: 048
     Dates: start: 20021201
  9. FLOMAX [Concomitant]
     Route: 048
     Dates: start: 20001201
  10. RITONAVIR [Concomitant]
     Route: 048
     Dates: start: 20060505
  11. TOPROL-XL [Concomitant]
     Route: 048
     Dates: start: 20040120
  12. SENNA [Concomitant]
     Route: 048
     Dates: start: 20101129

REACTIONS (1)
  - MANTLE CELL LYMPHOMA [None]
